FAERS Safety Report 10727077 (Version 1)
Quarter: 2015Q1

REPORT INFORMATION
  Report Type: Spontaneous
  Country: PR (occurrence: None)
  Receive Date: 20150120
  Receipt Date: 20150120
  Transmission Date: 20150721
  Serious: No
  Sender: FDA-Public Use
  Company Number: None

PATIENT
  Age: 67 Year
  Sex: Female
  Weight: 82.1 kg

DRUGS (1)
  1. SENSIPAR [Suspect]
     Active Substance: CINACALCET HYDROCHLORIDE
     Indication: HYPERPARATHYROIDISM
     Dosage: 1 TAB DAILY, QD, ORAL
     Route: 048
     Dates: start: 20140922

REACTIONS (1)
  - Muscle spasms [None]
